FAERS Safety Report 6917333-7 (Version None)
Quarter: 2010Q3

REPORT INFORMATION
  Report Type: 
  Country: None (occurrence: None)
  Receive Date: 20100805
  Receipt Date: 20100721
  Transmission Date: 20110219
  Serious: Yes (Death)
  Sender: FDA-Public Use
  Company Number: OSCN-PR-1007S-0200

PATIENT
  Age: 57 Year
  Sex: Male

DRUGS (3)
  1. OMNISCAN [Suspect]
     Indication: PRODUCT USED FOR UNKNOWN INDICATION
     Dosage: 10 MG, SINGLE DOSE; 10 ML, SINGLE DOSE; 10 ML, SINGLE DOSE
     Dates: start: 20041203, end: 20041203
  2. OMNISCAN [Suspect]
     Indication: PRODUCT USED FOR UNKNOWN INDICATION
     Dosage: 10 MG, SINGLE DOSE; 10 ML, SINGLE DOSE; 10 ML, SINGLE DOSE
     Dates: start: 20050915, end: 20050915
  3. OMNISCAN [Suspect]
     Indication: PRODUCT USED FOR UNKNOWN INDICATION
     Dosage: 10 MG, SINGLE DOSE; 10 ML, SINGLE DOSE; 10 ML, SINGLE DOSE
     Dates: start: 20051013, end: 20051013

REACTIONS (1)
  - DEATH [None]
